FAERS Safety Report 20922887 (Version 1)
Quarter: 2022Q2

REPORT INFORMATION
  Report Type: Spontaneous
  Country: CA (occurrence: CA)
  Receive Date: 20220607
  Receipt Date: 20220607
  Transmission Date: 20220720
  Serious: Yes (Other)
  Sender: FDA-Public Use
  Company Number: CA-LUNDBECK-DKLU3048686

PATIENT
  Age: 71 Year
  Sex: Female

DRUGS (1)
  1. TRINTELLIX [Suspect]
     Active Substance: VORTIOXETINE HYDROBROMIDE
     Indication: Depression
     Dosage: 5 MILLIGRAM, QD
     Route: 065
     Dates: start: 20220308

REACTIONS (4)
  - Brain injury [Unknown]
  - Muscle spasms [Unknown]
  - Dyskinesia [Unknown]
  - Facial spasm [Unknown]

NARRATIVE: CASE EVENT DATE: 20220308
